FAERS Safety Report 6423757-7 (Version None)
Quarter: 2009Q4

REPORT INFORMATION
  Report Type: 
  Country: None (occurrence: None)
  Receive Date: 20091028
  Receipt Date: 20091014
  Transmission Date: 20100525
  Serious: Yes (Hospitalization)
  Sender: FDA-Public Use
  Company Number: 2009AL006577

PATIENT
  Age: 37 Year
  Sex: Male

DRUGS (4)
  1. CARBAMAZEPINE [Suspect]
     Dosage: 1000 MG; QD;
  2. CLONAZEPAM [Suspect]
     Indication: BIPOLAR DISORDER
     Dosage: 2 MG; QD;
  3. LITHIUM CARBONATE [Concomitant]
  4. OLANZAPINE [Concomitant]

REACTIONS (10)
  - ANAEMIA [None]
  - APLASIA PURE RED CELL [None]
  - ASTHENIA [None]
  - BASOPHIL PERCENTAGE INCREASED [None]
  - BLOOD CHOLESTEROL INCREASED [None]
  - BLOOD ERYTHROPOIETIN INCREASED [None]
  - BLOOD IRON INCREASED [None]
  - BLOOD TRIGLYCERIDES INCREASED [None]
  - GAMMA-GLUTAMYLTRANSFERASE INCREASED [None]
  - PLATELET AGGREGATION [None]
